FAERS Safety Report 12642066 (Version 1)
Quarter: 2016Q3

REPORT INFORMATION
  Report Type: Spontaneous
  Country: US (occurrence: US)
  Receive Date: 20160810
  Receipt Date: 20160810
  Transmission Date: 20161109
  Serious: Yes (Hospitalization, Other)
  Sender: FDA-Public Use
  Company Number: US-AMGEN-USASP2016100365

PATIENT
  Age: 61 Year
  Sex: Female

DRUGS (1)
  1. PROLIA [Suspect]
     Active Substance: DENOSUMAB
     Indication: PRODUCT USED FOR UNKNOWN INDICATION
     Dosage: UNK
     Route: 065
     Dates: start: 20160531

REACTIONS (10)
  - Gastric disorder [Unknown]
  - Myalgia [Unknown]
  - Gastritis [Not Recovered/Not Resolved]
  - Rash [Recovered/Resolved]
  - Hypopnoea [Unknown]
  - Oropharyngeal pain [Not Recovered/Not Resolved]
  - Hyperhidrosis [Unknown]
  - Cystitis [Recovered/Resolved]
  - Adverse drug reaction [Unknown]
  - Pruritus [Unknown]

NARRATIVE: CASE EVENT DATE: 20160531
